FAERS Safety Report 19610546 (Version 1)
Quarter: 2021Q3

REPORT INFORMATION
  Report Type: Spontaneous
  Country: GB (occurrence: GB)
  Receive Date: 20210726
  Receipt Date: 20210726
  Transmission Date: 20211014
  Serious: Yes (Other)
  Sender: FDA-Public Use
  Company Number: GB-PUMA BIOTECHNOLOGY, INC.-2021-PUM-GB003970

PATIENT

DRUGS (8)
  1. CAPECITABINE. [Concomitant]
     Active Substance: CAPECITABINE
     Indication: BREAST CANCER METASTATIC
     Dosage: 1300 MG, BID (2/DAY)
     Route: 048
     Dates: start: 20210311, end: 20210325
  2. NERLYNX [Suspect]
     Active Substance: NERATINIB
     Dosage: RESUMED AT A DECREASED DOSE (160MG)
     Route: 065
  3. DEXAMETHASONE. [Concomitant]
     Active Substance: DEXAMETHASONE
     Indication: SEIZURE
     Dosage: 8 MG DAILY
     Route: 048
     Dates: start: 20210311
  4. LOPERAMIDE [Concomitant]
     Active Substance: LOPERAMIDE
     Indication: PRODUCT USED FOR UNKNOWN INDICATION
     Dosage: UNK
     Route: 048
     Dates: start: 20210311, end: 20210409
  5. KEPPRA [Concomitant]
     Active Substance: LEVETIRACETAM
     Dosage: GRADUALLY INCREASED TO 250 MG, TWICE DAILY
     Route: 048
  6. NERLYNX [Suspect]
     Active Substance: NERATINIB
     Indication: BREAST CANCER METASTATIC
     Dosage: 200 MG DAILY
     Route: 048
     Dates: start: 20210311
  7. KEPPRA [Concomitant]
     Active Substance: LEVETIRACETAM
     Indication: PRODUCT USED FOR UNKNOWN INDICATION
     Dosage: 250 MG DAILY
     Route: 048
     Dates: start: 20210311
  8. LANSOPRAZOLE. [Concomitant]
     Active Substance: LANSOPRAZOLE
     Indication: PRODUCT USED FOR UNKNOWN INDICATION
     Dosage: UNK
     Route: 065

REACTIONS (3)
  - Prescribed underdose [Unknown]
  - Thrombocytopenia [Recovered/Resolved]
  - Off label use [Unknown]

NARRATIVE: CASE EVENT DATE: 20210331
